FAERS Safety Report 6990280-0 (Version None)
Quarter: 2010Q3

REPORT INFORMATION
  Report Type: 
  Country: None (occurrence: None)
  Receive Date: 20100916
  Receipt Date: 20100525
  Transmission Date: 20110219
  Serious: Yes (Other)
  Sender: FDA-Public Use
  Company Number: US-PFIZER INC-2010066108

PATIENT
  Sex: Male

DRUGS (1)
  1. LYRICA [Suspect]
     Indication: FIBROMYALGIA
     Dosage: 2000 MG, UNK

REACTIONS (8)
  - AGGRESSION [None]
  - AMNESIA [None]
  - BALANCE DISORDER [None]
  - DRUG DEPENDENCE [None]
  - FEELING DRUNK [None]
  - ILL-DEFINED DISORDER [None]
  - PSYCHIATRIC SYMPTOM [None]
  - WITHDRAWAL SYNDROME [None]
